FAERS Safety Report 17112432 (Version 1)
Quarter: 2019Q4

REPORT INFORMATION
  Report Type: Spontaneous
  Country: US (occurrence: US)
  Receive Date: 20191112
  Receipt Date: 20191112
  Transmission Date: 20200122
  Serious: Yes (Life-Threatening, Hospitalization)
  Sender: FDA-Public Use
  Company Number: None

PATIENT
  Age: 64 Year
  Sex: Male
  Weight: 94.35 kg

DRUGS (8)
  1. PREDNISONE 10 MG TABLET [Concomitant]
     Active Substance: PREDNISONE
  2. MYCOPHENOLATE 500MG [Concomitant]
     Active Substance: MYCOPHENOLIC ACID
  3. XARELTO [Concomitant]
     Active Substance: RIVAROXABAN
  4. ALLOPURINOL. [Suspect]
     Active Substance: ALLOPURINOL
     Indication: BLOOD URIC ACID INCREASED
     Dosage: ?          QUANTITY:1 DF DOSAGE FORM;?
     Route: 048
     Dates: end: 20190420
  5. PREDNISOLONE. [Concomitant]
     Active Substance: PREDNISOLONE
  6. FUROSIMIDE ?? 5MG TABLET [Concomitant]
  7. METOPROLOL. [Concomitant]
     Active Substance: METOPROLOL
  8. FLOMAXO 4MG CAP [Concomitant]

REACTIONS (12)
  - Toxic epidermal necrolysis [None]
  - Ocular hyperaemia [None]
  - Swelling face [None]
  - Stevens-Johnson syndrome [None]
  - Pyrexia [None]
  - Conjunctivitis bacterial [None]
  - Blood pressure fluctuation [None]
  - Foreign body sensation in eyes [None]
  - Eye disorder [None]
  - Vision blurred [None]
  - Thermal burn [None]
  - Blister [None]

NARRATIVE: CASE EVENT DATE: 20190429
